FAERS Safety Report 8349291-5 (Version None)
Quarter: 2012Q2

REPORT INFORMATION
  Report Type: 
  Country: None (occurrence: None)
  Receive Date: 20120510
  Receipt Date: 20120509
  Transmission Date: 20120825
  Serious: Yes (Death)
  Sender: FDA-Public Use
  Company Number: PHHY2012NL029879

PATIENT
  Sex: Male

DRUGS (11)
  1. ZOMETA [Suspect]
     Indication: PROSTATE CANCER METASTATIC
     Dosage: 4 MG,/ 100 ML ONCE IN EVERY 28 DAYS
     Route: 042
  2. HYDROCHLOROTHIAZIDE [Concomitant]
     Dosage: 12.5 MG, ONCE DAILY
  3. METFORMIN HCL [Concomitant]
     Dosage: 500 MG, BID
  4. ZOMETA [Suspect]
     Dosage: 4 MG,/ 100 ML ONCE IN EVERY 28 DAYS
     Route: 042
     Dates: start: 20110912, end: 20120229
  5. LYNORAL [Concomitant]
     Dosage: 0.05 MG, ONCE DAILY
  6. ZOMETA [Suspect]
     Dosage: 4 MG,/ 100 ML ONCE IN EVERY 28 DAYS
     Route: 042
     Dates: start: 20120308
  7. ZOMETA [Suspect]
     Dosage: 4 MG,/ 100 ML ONCE IN EVERY 28 DAYS
     Route: 042
     Dates: start: 20120405
  8. CALCIUM CARBONATE W/COLECALCIFEROL [Concomitant]
     Dosage: UNK UKN, UNK
  9. SINTROM [Concomitant]
  10. EMSELEX [Concomitant]
     Dosage: 7.5 MG, ONCE DAILY
  11. LHRH FERRING [Concomitant]
     Dosage: UNK UKN, UNK

REACTIONS (4)
  - GAIT DISTURBANCE [None]
  - DEATH [None]
  - URINARY INCONTINENCE [None]
  - GENERAL PHYSICAL HEALTH DETERIORATION [None]
